FAERS Safety Report 10265295 (Version 4)
Quarter: 2014Q3

REPORT INFORMATION
  Report Type: Report from Study
  Country: KR (occurrence: KR)
  Receive Date: 20140627
  Receipt Date: 20140718
  Transmission Date: 20150326
  Serious: Yes (Hospitalization)
  Sender: FDA-Public Use
  Company Number: KR-EISAI INC-E2007-01764-CLI-KR

PATIENT
  Age: 58 Year
  Sex: Male
  Weight: 74.3 kg

DRUGS (8)
  1. TISOP EYE DROP [Concomitant]
  2. DRIED ALUMINUM HYDROXIDE [Concomitant]
  3. MOSAPRIDE [Concomitant]
     Active Substance: MOSAPRIDE
  4. FYCOMPA [Suspect]
     Active Substance: PERAMPANEL
     Route: 048
     Dates: start: 20140624, end: 20140624
  5. FYCOMPA [Suspect]
     Active Substance: PERAMPANEL
     Indication: PARTIAL SEIZURES
     Route: 048
     Dates: start: 20140114, end: 20140623
  6. OXCARBAZEPINE. [Concomitant]
     Active Substance: OXCARBAZEPINE
  7. LATANOPROST. [Concomitant]
     Active Substance: LATANOPROST
  8. VALPROATE [Concomitant]
     Active Substance: VALPROATE SODIUM

REACTIONS (1)
  - Myocardial infarction [Recovered/Resolved]

NARRATIVE: CASE EVENT DATE: 20140625
